FAERS Safety Report 7522718-4 (Version None)
Quarter: 2011Q2

REPORT INFORMATION
  Report Type: 
  Country: None (occurrence: None)
  Receive Date: 20110603
  Receipt Date: 20110530
  Transmission Date: 20111010
  Serious: Yes (Hospitalization, Other)
  Sender: FDA-Public Use
  Company Number: CA-ABBOTT-11P-028-0723395-00

PATIENT
  Sex: Female
  Weight: 59.02 kg

DRUGS (2)
  1. TAPAZOLE [Suspect]
     Indication: BASEDOW'S DISEASE
     Route: 048
     Dates: start: 20110210, end: 20110310
  2. HUMIRA [Suspect]
     Indication: CROHN'S DISEASE
     Route: 058
     Dates: start: 20100319, end: 20101210

REACTIONS (18)
  - TREMOR [None]
  - INSOMNIA [None]
  - FATIGUE [None]
  - ARTHRALGIA [None]
  - DYSPNOEA [None]
  - DIARRHOEA [None]
  - COUGH [None]
  - ORGANISING PNEUMONIA [None]
  - WEIGHT DECREASED [None]
  - NERVOUSNESS [None]
  - BASEDOW'S DISEASE [None]
  - LUNG INFILTRATION [None]
  - PYREXIA [None]
  - HEART RATE INCREASED [None]
  - CROHN'S DISEASE [None]
  - CHILLS [None]
  - HYPOAESTHESIA [None]
  - JOINT DEPOSIT [None]
